FAERS Safety Report 22065553 (Version 1)
Quarter: 2023Q1

REPORT INFORMATION
  Report Type: Spontaneous
  Country: US (occurrence: US)
  Receive Date: 20230306
  Receipt Date: 20230306
  Transmission Date: 20230418
  Serious: Yes (Death, Other)
  Sender: FDA-Public Use
  Company Number: US-INCYTE CORPORATION-2023IN002225

PATIENT

DRUGS (1)
  1. JAKAFI [Suspect]
     Active Substance: RUXOLITINIB
     Indication: Myelofibrosis
     Dosage: 10 MILLIGRAM, DAILY
     Route: 048
     Dates: start: 202209, end: 20230215

REACTIONS (4)
  - Leukaemia [Fatal]
  - Myelofibrosis [Fatal]
  - Disease complication [Fatal]
  - Disease progression [Fatal]
